FAERS Safety Report 6576767-3 (Version None)
Quarter: 2010Q1

REPORT INFORMATION
  Report Type: 
  Country: None (occurrence: None)
  Receive Date: 20100210
  Receipt Date: 20100128
  Transmission Date: 20100710
  Serious: Yes (Hospitalization, Other)
  Sender: FDA-Public Use
  Company Number: US-ELI_LILLY_AND_COMPANY-US200912002430

PATIENT
  Sex: Female

DRUGS (8)
  1. CYMBALTA [Suspect]
     Indication: SUICIDAL IDEATION
     Dosage: 30 MG, DAILY (1/D)
  2. CYMBALTA [Suspect]
     Dosage: 60 MG, DAILY (1/D)
  3. TRAMADOL [Concomitant]
  4. FUROSEMIDE [Concomitant]
  5. ALLERGY MEDICATION [Concomitant]
  6. SYNTHROID [Concomitant]
  7. DIAZEPAM [Concomitant]
  8. TYLENOL (CAPLET) [Concomitant]

REACTIONS (34)
  - APHASIA [None]
  - BACK PAIN [None]
  - BLOOD PRESSURE DECREASED [None]
  - CONFUSIONAL STATE [None]
  - CONSTIPATION [None]
  - CONTUSION [None]
  - DISORIENTATION [None]
  - DIZZINESS [None]
  - DRUG INTERACTION [None]
  - DRUG WITHDRAWAL SYNDROME [None]
  - DYSPHAGIA [None]
  - DYSPHONIA [None]
  - DYSURIA [None]
  - EAR PAIN [None]
  - FALL [None]
  - FATIGUE [None]
  - FEELING ABNORMAL [None]
  - HALLUCINATION [None]
  - HEAD INJURY [None]
  - IMPAIRED DRIVING ABILITY [None]
  - INJURY [None]
  - LACERATION [None]
  - LIP SWELLING [None]
  - LOCAL SWELLING [None]
  - LOSS OF CONSCIOUSNESS [None]
  - MUSCULOSKELETAL DISCOMFORT [None]
  - NASOPHARYNGITIS [None]
  - SCAR [None]
  - SKIN DISCOLOURATION [None]
  - SKIN LESION [None]
  - SOMNOLENCE [None]
  - TREMOR [None]
  - VOMITING [None]
  - WEIGHT INCREASED [None]
